FAERS Safety Report 6770476-3 (Version None)
Quarter: 2010Q2

REPORT INFORMATION
  Report Type: 
  Country: None (occurrence: None)
  Receive Date: 20100615
  Receipt Date: 20100604
  Transmission Date: 20101027
  Serious: Yes (Hospitalization, Other)
  Sender: FDA-Public Use
  Company Number: US-AMGEN-KDL412905

PATIENT
  Sex: Female
  Weight: 84 kg

DRUGS (14)
  1. ENBREL [Suspect]
     Indication: PSORIATIC ARTHROPATHY
     Route: 058
     Dates: start: 20100106, end: 20100520
  2. ENBREL [Suspect]
     Indication: PSORIASIS
  3. ZOLPIDEM TARTRATE [Concomitant]
     Route: 048
  4. CALCIUM CARBONATE [Concomitant]
     Route: 048
  5. OXYCODONE HCL AND ACETAMINOPHEN [Concomitant]
     Route: 048
  6. LIPITOR [Concomitant]
     Route: 048
  7. FOSAMAX [Concomitant]
     Route: 048
  8. ATIVAN [Concomitant]
  9. ASPIRIN [Concomitant]
     Route: 048
  10. CELEXA [Concomitant]
     Route: 048
  11. BACTRIM DS [Concomitant]
     Route: 048
  12. CALCITRIOL [Concomitant]
     Route: 061
  13. DIAZEPAM [Concomitant]
  14. NEXIUM [Concomitant]
     Route: 048

REACTIONS (4)
  - PANCREATIC CYST [None]
  - PANCREATIC NEOPLASM [None]
  - PANCREATIC PSEUDOCYST [None]
  - WEIGHT DECREASED [None]
